FAERS Safety Report 4436552-5 (Version None)
Quarter: 2004Q3

REPORT INFORMATION
  Report Type: 
  Country: None (occurrence: None)
  Receive Date: 20040830
  Receipt Date: 20040623
  Transmission Date: 20050211
  Serious: No
  Sender: FDA-Public Use
  Company Number: US-BRISTOL-MYERS SQUIBB COMPANY-12623229

PATIENT
  Age: 35 Year
  Sex: Male
  Weight: 98 kg

DRUGS (5)
  1. ABILIFY [Suspect]
     Indication: SCHIZOPHRENIA
     Dosage: 15 MG 1 TABLET DAILY IN THE EVENINGS TAKEN IN ADDITION TO THE MORNING DOSE.
     Route: 048
     Dates: start: 20040405, end: 20040601
  2. AVANDIA [Concomitant]
     Dates: start: 20040101
  3. ATENOLOL [Concomitant]
  4. LIPITOR [Concomitant]
  5. PLENDIL [Concomitant]
     Dates: start: 20040101

REACTIONS (9)
  - APHASIA [None]
  - DYSARTHRIA [None]
  - HEADACHE [None]
  - HEMIPARESIS [None]
  - JOINT STIFFNESS [None]
  - MIGRAINE [None]
  - MUSCULAR WEAKNESS [None]
  - MUSCULOSKELETAL STIFFNESS [None]
  - VISUAL DISTURBANCE [None]
